FAERS Safety Report 7283799-9 (Version None)
Quarter: 2011Q1

REPORT INFORMATION
  Report Type: 
  Country: None (occurrence: None)
  Receive Date: 20110209
  Receipt Date: 20110128
  Transmission Date: 20110831
  Serious: No
  Sender: FDA-Public Use
  Company Number: US-MERCK-1012USA03371

PATIENT
  Sex: Female

DRUGS (3)
  1. DIGOXIN [Concomitant]
     Route: 048
  2. TERBUTALINE SULFATE [Concomitant]
     Route: 048
  3. DECADRON [Suspect]
     Route: 048

REACTIONS (2)
  - DRUG EXPOSURE DURING PREGNANCY [None]
  - CAESAREAN SECTION [None]
